FAERS Safety Report 8080942-9 (Version None)
Quarter: 2012Q1

REPORT INFORMATION
  Report Type: 
  Country: None (occurrence: None)
  Receive Date: 20120130
  Receipt Date: 20120125
  Transmission Date: 20120608
  Serious: Yes (Other)
  Sender: FDA-Public Use
  Company Number: US-JNJFOC-20120105701

PATIENT
  Sex: Male
  Weight: 73 kg

DRUGS (3)
  1. ABIRATERONE ACETATE [Suspect]
     Indication: PROSTATE CANCER METASTATIC
     Route: 048
     Dates: start: 20111114
  2. ABIRATERONE ACETATE [Suspect]
     Route: 048
  3. PREDNISONE TAB [Suspect]
     Indication: PROSTATE CANCER METASTATIC
     Route: 065

REACTIONS (1)
  - HEPATIC ENZYME INCREASED [None]
